FAERS Safety Report 4661436-7 (Version None)
Quarter: 2005Q2

REPORT INFORMATION
  Report Type: 
  Country: None (occurrence: None)
  Receive Date: 20050513
  Receipt Date: 20050503
  Transmission Date: 20051028
  Serious: Yes (Other)
  Sender: FDA-Public Use
  Company Number: US-GLAXOSMITHKLINE-A0558210A

PATIENT
  Age: 43 Year
  Sex: Male

DRUGS (1)
  1. PAXIL [Suspect]
     Indication: DRUG USE FOR UNKNOWN INDICATION
     Route: 048
     Dates: start: 20020701

REACTIONS (15)
  - AGGRESSION [None]
  - CRYING [None]
  - DRUG WITHDRAWAL SYNDROME [None]
  - FEELING JITTERY [None]
  - HOMICIDAL IDEATION [None]
  - HOT FLUSH [None]
  - INSOMNIA [None]
  - IRRITABILITY [None]
  - MIGRAINE [None]
  - NERVOUSNESS [None]
  - NIGHTMARE [None]
  - PARAESTHESIA [None]
  - SUICIDAL IDEATION [None]
  - SUICIDE ATTEMPT [None]
  - VISION BLURRED [None]
